FAERS Safety Report 8600082-7 (Version None)
Quarter: 2012Q3

REPORT INFORMATION
  Report Type: 
  Country: None (occurrence: None)
  Receive Date: 20120816
  Receipt Date: 20120813
  Transmission Date: 20120928
  Serious: Yes (Hospitalization)
  Sender: FDA-Public Use
  Company Number: FR-AMGEN-FRASP2012051217

PATIENT
  Age: 48 Year
  Sex: Female
  Weight: 57 kg

DRUGS (11)
  1. PAROEX [Concomitant]
     Dosage: UNK UNK, PRN
     Dates: start: 20120507
  2. ACETAMINOPHEN [Concomitant]
     Dosage: UNK
     Dates: start: 20120401
  3. PANTOPRAZOLE [Concomitant]
     Dosage: 20 MG, UNK
     Dates: start: 20120516
  4. TRASTUZUMAB [Suspect]
     Indication: BREAST CANCER
     Dosage: 456 MG, Q3WK
     Route: 042
     Dates: start: 20120416
  5. MEDROL [Concomitant]
     Dosage: J4 J-1/CYCLE
     Dates: start: 20120415
  6. ANTIDEPRESSANTS [Concomitant]
  7. ALODONT [Concomitant]
     Dosage: UNK UNK, PRN
     Dates: start: 20120416
  8. PEGFILGRASTIM [Suspect]
     Indication: BREAST CANCER
     Dosage: UNK
     Dates: start: 20120530
  9. FLUCONAZOLE [Concomitant]
     Dosage: 200 MG, UNK
     Dates: start: 20120427
  10. DOCETAXEL [Suspect]
     Indication: BREAST CANCER
     Dosage: 155 MG, Q3WK
     Route: 042
     Dates: start: 20120416
  11. BICARBONATE [Concomitant]
     Dosage: UNK UNK, PRN
     Dates: start: 20120416

REACTIONS (1)
  - BACK PAIN [None]
